FAERS Safety Report 21098430 (Version 1)
Quarter: 2022Q3

REPORT INFORMATION
  Report Type: Spontaneous
  Country: US (occurrence: US)
  Receive Date: 20220719
  Receipt Date: 20220719
  Transmission Date: 20221026
  Serious: No
  Sender: FDA-Public Use
  Company Number: US-BRISTOL-MYERS SQUIBB COMPANY-2022-066233

PATIENT
  Age: 65 Year
  Sex: Male

DRUGS (1)
  1. SPRYCEL [Suspect]
     Active Substance: DASATINIB
     Indication: Chronic myeloid leukaemia
     Route: 048
     Dates: start: 20210226

REACTIONS (7)
  - Inflammation [Unknown]
  - Cardiac disorder [Unknown]
  - Pruritus [Unknown]
  - Stomatitis [Unknown]
  - Neck pain [Unknown]
  - Memory impairment [Unknown]
  - Headache [Unknown]
